FAERS Safety Report 10583079 (Version 1)
Quarter: 2014Q4

REPORT INFORMATION
  Report Type: Spontaneous
  Country: FR (occurrence: FR)
  Receive Date: 20141114
  Receipt Date: 20141114
  Transmission Date: 20150529
  Serious: Yes (Congenital Anomaly)
  Sender: FDA-Public Use
  Company Number: FR-ROCHE-1487307

PATIENT
  Sex: Female

DRUGS (1)
  1. CELLCEPT [Suspect]
     Active Substance: MYCOPHENOLATE MOFETIL\MYCOPHENOLATE MOFETIL HYDROCHLORIDE
     Indication: PRODUCT USED FOR UNKNOWN INDICATION
     Route: 064

REACTIONS (6)
  - Hypertelorism of orbit [Unknown]
  - Foetal exposure during pregnancy [Unknown]
  - External auditory canal atresia [Unknown]
  - Mandibulofacial dysostosis [Unknown]
  - Micrognathia [Unknown]
  - Pierre Robin syndrome [Unknown]

NARRATIVE: CASE EVENT DATE: 201305
